FAERS Safety Report 6935278-3 (Version None)
Quarter: 2010Q3

REPORT INFORMATION
  Report Type: 
  Country: None (occurrence: None)
  Receive Date: 20100822
  Receipt Date: 20100804
  Transmission Date: 20110219
  Serious: Yes (Hospitalization, Other)
  Sender: FDA-Public Use
  Company Number: PHEH2007US03717

PATIENT
  Sex: Female
  Weight: 93.787 kg

DRUGS (38)
  1. ZOMETA [Suspect]
     Indication: MULTIPLE MYELOMA
     Route: 042
  2. PAXIL [Concomitant]
     Dosage: 60 MG, UNK
  3. TRAZODONE HCL [Concomitant]
     Dosage: 100 MG, QHS
     Route: 048
  4. CLONAZEPAM [Concomitant]
     Dosage: 0.5MG QAM AND 1.0MG QPM
  5. LASIX [Concomitant]
     Dosage: 20 MG, UNK
  6. K-TAB [Concomitant]
     Dosage: 10 MEQ, QID
  7. LORTAB [Concomitant]
     Dosage: 7.5/ 500 MG
  8. REGLAN [Concomitant]
     Dosage: 10 MG, UNK
  9. XANAX [Concomitant]
     Dosage: 0.5 MG, BID
     Route: 048
  10. M.V.I. [Concomitant]
     Dosage: 1 TAB QD
  11. MORPHINE [Concomitant]
     Dosage: UNK
  12. MAGNESIUM OXIDE [Concomitant]
     Dosage: 800 MG, BID
     Route: 048
  13. FOSINOPRIL SODIUM [Concomitant]
     Dosage: 40 MG, QD
     Route: 048
  14. ACETAMINOPHEN AND HYDROCODONE BITARTRATE [Concomitant]
     Dosage: 10 / 500MG
  15. FENTANYL CITRATE [Concomitant]
     Dosage: 25 MCG/HR
     Route: 062
  16. CIPROFLOXACIN [Concomitant]
     Dosage: 500 MG, UNK
  17. INNOHEP                                 /GFR/ [Concomitant]
  18. CARVEDILOL [Concomitant]
     Dosage: 25 MG, UNK
  19. COREG [Concomitant]
     Dosage: 2 DF, BID
  20. MULTI-VITAMINS [Concomitant]
  21. ROBAXIN [Concomitant]
     Dosage: 750 MG, PRN
  22. DURAGESIC-100 [Concomitant]
     Dosage: 25 UG, PRN
  23. DECADRON [Concomitant]
     Dosage: 4 MG, PRN
  24. CORTEF                                  /CAN/ [Concomitant]
     Dosage: 10 MG, QD
  25. MONOPRIL [Concomitant]
  26. CLARITIN [Concomitant]
  27. DRISDOL [Concomitant]
  28. OXYCODONE HCL AND ACETAMINOPHEN [Concomitant]
  29. CYANOCOBALAMIN [Concomitant]
  30. NEURONTIN [Concomitant]
  31. LOMOTIL [Concomitant]
  32. INSULIN [Concomitant]
  33. NORVASC [Concomitant]
  34. K-DUR [Concomitant]
  35. FLUVACCIN [Concomitant]
  36. PNEUMOVAX 23 [Concomitant]
  37. ALDACTONE [Concomitant]
  38. KLONOPIN [Concomitant]

REACTIONS (48)
  - ABSCESS [None]
  - ADDISON'S DISEASE [None]
  - ADRENAL INSUFFICIENCY [None]
  - ANXIETY [None]
  - AORTIC VALVE DISEASE [None]
  - AORTIC VALVE INCOMPETENCE [None]
  - BACK PAIN [None]
  - BREAST CALCIFICATIONS [None]
  - BREAST CYST [None]
  - CARDIAC FAILURE CONGESTIVE [None]
  - CONGESTIVE CARDIOMYOPATHY [None]
  - DECREASED INTEREST [None]
  - DEEP VEIN THROMBOSIS [None]
  - DEPRESSION [None]
  - DIABETES MELLITUS [None]
  - DIARRHOEA [None]
  - DILATATION ATRIAL [None]
  - DILATATION VENTRICULAR [None]
  - DIVERTICULUM INTESTINAL [None]
  - DYSPNOEA EXERTIONAL [None]
  - EATING DISORDER [None]
  - EJECTION FRACTION DECREASED [None]
  - GINGIVAL INFECTION [None]
  - HYPERKALAEMIA [None]
  - INCISIONAL DRAINAGE [None]
  - INJURY [None]
  - INTERVERTEBRAL DISC DEGENERATION [None]
  - LEFT VENTRICULAR HYPERTROPHY [None]
  - MIGRAINE [None]
  - MITRAL VALVE DISEASE [None]
  - MITRAL VALVE INCOMPETENCE [None]
  - MOUTH ULCERATION [None]
  - NAUSEA [None]
  - OEDEMA [None]
  - ORAL PAIN [None]
  - ORAL SURGERY [None]
  - OSTEOMYELITIS [None]
  - OSTEONECROSIS OF JAW [None]
  - PAIN [None]
  - PALPITATIONS [None]
  - PERICARDIAL EFFUSION [None]
  - PULMONARY VALVE INCOMPETENCE [None]
  - SLEEP DISORDER [None]
  - SWELLING FACE [None]
  - TENDERNESS [None]
  - THALASSAEMIA BETA [None]
  - TRICUSPID VALVE INCOMPETENCE [None]
  - VOMITING [None]
